FAERS Safety Report 7478914-8 (Version None)
Quarter: 2011Q2

REPORT INFORMATION
  Report Type: 
  Country: None (occurrence: None)
  Receive Date: 20110513
  Receipt Date: 20110511
  Transmission Date: 20111010
  Serious: Yes (Life-Threatening)
  Sender: FDA-Public Use
  Company Number: AT-ROCHE-776557

PATIENT
  Sex: Female

DRUGS (2)
  1. BEVACIZUMAB [Suspect]
     Dosage: LAST DOSE: 1 SEP 2009
     Route: 065
     Dates: start: 20090701, end: 20091008
  2. PACLITAXEL [Suspect]
     Dosage: LAST DOSE: 1 SEO 2009 AT DOSE 155 MG/M2
     Route: 065
     Dates: start: 20090701, end: 20091008

REACTIONS (1)
  - INTERSTITIAL LUNG DISEASE [None]
